FAERS Safety Report 5480072-6 (Version None)
Quarter: 2007Q4

REPORT INFORMATION
  Report Type: 
  Country: None (occurrence: None)
  Receive Date: 20071008
  Receipt Date: 20070926
  Transmission Date: 20080405
  Serious: Yes (Other)
  Sender: FDA-Public Use
  Company Number: US-PFIZER INC-2007081946

PATIENT
  Sex: Female
  Weight: 55.909 kg

DRUGS (7)
  1. CHANTIX [Suspect]
     Indication: SMOKING CESSATION THERAPY
     Dates: start: 20070723, end: 20070924
  2. SOLU-MEDROL [Suspect]
     Indication: MULTIPLE SCLEROSIS
     Dates: start: 20070915, end: 20070917
  3. EVISTA [Concomitant]
  4. TRICOR [Concomitant]
  5. LISINOPRIL AND HYDROCHLOROTHIAZIDE [Concomitant]
  6. OMEPRAZOLE [Concomitant]
     Indication: STOMACH DISCOMFORT
  7. BACLOFEN [Concomitant]
     Dosage: FREQ:AT NIGHT

REACTIONS (11)
  - BALANCE DISORDER [None]
  - DIZZINESS [None]
  - DYSKINESIA [None]
  - DYSPHONIA [None]
  - HYPOAESTHESIA FACIAL [None]
  - IRRITABILITY [None]
  - MENTAL IMPAIRMENT [None]
  - MULTIPLE SCLEROSIS [None]
  - SPEECH DISORDER [None]
  - TOBACCO WITHDRAWAL SYMPTOMS [None]
  - VOMITING [None]
